FAERS Safety Report 17240590 (Version 1)
Quarter: 2020Q1

REPORT INFORMATION
  Report Type: Spontaneous
  Country: US (occurrence: US)
  Receive Date: 20200107
  Receipt Date: 20200107
  Transmission Date: 20200409
  Serious: No
  Sender: FDA-Public Use
  Company Number: US-JNJFOC-20200101297

PATIENT
  Sex: Female
  Weight: 61.74 kg

DRUGS (1)
  1. MENS ROGAINE EXTRA STRENGTH [Suspect]
     Active Substance: MINOXIDIL
     Indication: ALOPECIA
     Dosage: FULL THE CAP
     Route: 061

REACTIONS (4)
  - Product use issue [Unknown]
  - Overdose [Unknown]
  - Product formulation issue [Unknown]
  - Intentional product misuse [Unknown]
